FAERS Safety Report 23367087 (Version 1)
Quarter: 2024Q1

REPORT INFORMATION
  Report Type: Spontaneous
  Country: US (occurrence: None)
  Receive Date: 20240104
  Receipt Date: 20240104
  Transmission Date: 20240410
  Serious: Yes (Disabling, Other)
  Sender: FDA-Public Use
  Company Number: None

PATIENT
  Age: 70 Year
  Sex: Female
  Weight: 60.75 kg

DRUGS (15)
  1. RECLAST [Suspect]
     Active Substance: ZOLEDRONIC ACID
     Indication: Osteopenia
     Dates: start: 20230928, end: 20230928
  2. L-Glutamine [Concomitant]
  3. ARGININE [Concomitant]
     Active Substance: ARGININE
  4. MULTI-VITAMIN [Concomitant]
     Active Substance: .ALPHA.-TOCOPHEROL ACETATE, DL-\ASCORBIC ACID\CYANOCOBALAMIN\FLUORIDE ION\FOLIC ACID\NIACIN\PYRIDOXI
  5. VITAMIN B COMPLEX [Concomitant]
     Active Substance: CYANOCOBALAMIN\DEXPANTHENOL\NIACINAMIDE\PYRIDOXINE HYDROCHLORIDE\RIBOFLAVIN 5^-PHOSPHATE SODIUM\THIA
  6. TYROSINE [Concomitant]
     Active Substance: TYROSINE
  7. vegan Omega 3 [Concomitant]
  8. VITAMIN D3 [Concomitant]
     Active Substance: CHOLECALCIFEROL
  9. VITAMIN B12 [Concomitant]
     Active Substance: CYANOCOBALAMIN
  10. TUMS [Concomitant]
     Active Substance: CALCIUM CARBONATE
  11. CALCIUM [Concomitant]
     Active Substance: CALCIUM
  12. simethecone [Concomitant]
  13. turmeric powder w/black pepper [Concomitant]
  14. vegan digestive enzyme complex [Concomitant]
  15. Dulcolax chews (magnesium) [Concomitant]

REACTIONS (18)
  - Infusion related reaction [None]
  - Arthralgia [None]
  - Chills [None]
  - Hypertension [None]
  - Chills [None]
  - Pruritus [None]
  - Urticaria [None]
  - Urticaria [None]
  - Joint swelling [None]
  - Contusion [None]
  - Pain in extremity [None]
  - Arthralgia [None]
  - Pain [None]
  - Arthralgia [None]
  - Gait disturbance [None]
  - Depression [None]
  - Anger [None]
  - Pain in extremity [None]

NARRATIVE: CASE EVENT DATE: 20230929
